FAERS Safety Report 23068892 (Version 1)
Quarter: 2023Q4

REPORT INFORMATION
  Report Type: Spontaneous
  Country: GB (occurrence: GB)
  Receive Date: 20231016
  Receipt Date: 20231016
  Transmission Date: 20240109
  Serious: Yes (Other)
  Sender: FDA-Public Use
  Company Number: GB-PHARMAESSENTIA CORPORATION-GB-2023-PEC-002216

PATIENT
  Age: 70 Year
  Sex: Male

DRUGS (4)
  1. BESREMI [Suspect]
     Active Substance: ROPEGINTERFERON ALFA-2B-NJFT
     Indication: Polycythaemia vera
     Dosage: DOSAGE UNKNOWN.
     Route: 065
     Dates: start: 20220720
  2. ASPIRIN [Concomitant]
     Active Substance: ASPIRIN
     Indication: Polycythaemia vera
     Dosage: DOSAGE UNKNOWN.
     Route: 065
     Dates: start: 20180310
  3. LISINOPRIL [Concomitant]
     Active Substance: LISINOPRIL
     Indication: Hypertension
     Dosage: DOSAGE UNKNOWN.
     Route: 065
     Dates: start: 20150907
  4. HYDREA [Concomitant]
     Active Substance: HYDROXYUREA
     Indication: Polycythaemia vera
     Dosage: START DATE AND DOSAGE UNKNOWN.
     Route: 065

REACTIONS (6)
  - Night sweats [Unknown]
  - Drug interaction [Unknown]
  - Asthenia [Unknown]
  - Influenza like illness [Recovering/Resolving]
  - Headache [Unknown]
  - Chills [Unknown]

NARRATIVE: CASE EVENT DATE: 20230925
